FAERS Safety Report 8848644 (Version 1)
Quarter: 2012Q4

REPORT INFORMATION
  Report Type: 
  Country: US (occurrence: FR)
  Receive Date: 20121018
  Receipt Date: 20121018
  Transmission Date: 20130627
  Serious: Yes (Death)
  Sender: FDA-Public Use
  Company Number: FR-ROXANE LABORATORIES, INC.-2012-EU-05188GD

PATIENT
  Age: 27 Year
  Sex: Male

DRUGS (5)
  1. OXAZEPAM [Suspect]
  2. IBOGAINE [Suspect]
     Dosage: 13 teaspoons at 1.5 g dried bark/teaspoon
     Route: 048
  3. DIAZEPAM [Suspect]
  4. TEMAZEPAM [Suspect]
  5. METHADONE [Suspect]

REACTIONS (2)
  - Toxicity to various agents [Fatal]
  - Drug dependence [Unknown]
